FAERS Safety Report 5091074-6 (Version None)
Quarter: 2006Q3

REPORT INFORMATION
  Report Type: 
  Country: None (occurrence: None)
  Receive Date: 20060829
  Receipt Date: 20060823
  Transmission Date: 20061208
  Serious: Yes (Other)
  Sender: FDA-Public Use
  Company Number: 2006UW16775

PATIENT
  Age: 61 Year
  Sex: Female
  Weight: 108.9 kg

DRUGS (4)
  1. ARIMIDEX [Suspect]
     Indication: BREAST CANCER
     Route: 048
     Dates: start: 20060701
  2. VASOTEC [Concomitant]
  3. HYDROCHLOROTHIAZIDE [Concomitant]
  4. ZOCOR [Concomitant]

REACTIONS (6)
  - BREAST PAIN [None]
  - CONSTIPATION [None]
  - HEART RATE ABNORMAL [None]
  - HOT FLUSH [None]
  - HYPERHIDROSIS [None]
  - URINARY TRACT INFECTION [None]
